FAERS Safety Report 9461426 (Version 1)
Quarter: 2013Q3

REPORT INFORMATION
  Report Type: Spontaneous
  Country: US (occurrence: None)
  Receive Date: 20130814
  Receipt Date: 20130814
  Transmission Date: 20140515
  Serious: Yes (Life-Threatening, Hospitalization, Disabling)
  Sender: FDA-Public Use
  Company Number: None

PATIENT
  Age: 26 Year
  Sex: 0
  Weight: 106.6 kg

DRUGS (1)
  1. LYRICA LYRICA 150 MG [Suspect]

REACTIONS (5)
  - Intracranial pressure increased [None]
  - Hypothalamo-pituitary disorder [None]
  - Adrenal insufficiency [None]
  - Suicide attempt [None]
  - Weight increased [None]
